FAERS Safety Report 8809817 (Version 2)
Quarter: 2012Q4

REPORT INFORMATION
  Report Type: 
  Country: FR (occurrence: FR)
  Receive Date: 20120926
  Receipt Date: 20121015
  Transmission Date: 20130627
  Serious: Yes (Hospitalization)
  Sender: FDA-Public Use
  Company Number: FR-ABBOTT-12P-056-0986883-00

PATIENT
  Sex: Female

DRUGS (23)
  1. UTROGESTAN [Suspect]
     Indication: IN VITRO FERTILISATION
     Route: 048
     Dates: start: 1995
  2. UTROGESTAN [Suspect]
     Route: 048
     Dates: start: 1996
  3. UTROGESTAN [Suspect]
     Route: 048
     Dates: start: 1997
  4. UTROGESTAN [Suspect]
     Route: 048
     Dates: start: 1998
  5. LEUPRORELIN DEPOT [Suspect]
     Indication: ENDOMETRIOSIS
     Route: 065
     Dates: end: 2002
  6. GONADORELIN [Suspect]
     Indication: IN VITRO FERTILISATION
     Route: 065
     Dates: start: 1993
  7. GONADORELIN [Suspect]
     Route: 065
     Dates: start: 1994
  8. GONADORELIN [Suspect]
     Route: 065
     Dates: start: 1996
  9. GONADORELIN [Suspect]
     Route: 065
     Dates: start: 1998
  10. UROFOLLITROPIN [Suspect]
     Indication: IN VITRO FERTILISATION
     Route: 065
     Dates: start: 1994
  11. UROFOLLITROPIN [Suspect]
     Route: 065
     Dates: start: 1995
  12. UROFOLLITROPIN [Suspect]
     Route: 065
     Dates: start: 1996
  13. MENOTROPHIN [Suspect]
     Indication: IN VITRO FERTILISATION
     Route: 065
     Dates: start: 1994
  14. MENOTROPHIN [Suspect]
     Route: 065
     Dates: start: 1995
  15. MENOTROPHIN [Suspect]
     Indication: IN VITRO FERTILISATION
     Route: 030
     Dates: start: 1996
  16. MENOTROPHIN [Suspect]
     Route: 030
     Dates: start: 1995
  17. FOLLITROPIN ALFA [Suspect]
     Indication: IN VITRO FERTILISATION
     Route: 058
     Dates: start: 1997
  18. FOLLITROPIN ALFA [Suspect]
     Route: 058
     Dates: start: 1998
  19. FOLLITROPIN ALFA [Suspect]
     Route: 058
     Dates: start: 2002
  20. PROMEGESTONE [Suspect]
     Indication: IN VITRO FERTILISATION
     Route: 048
     Dates: start: 1994
  21. PROMEGESTONE [Suspect]
     Route: 048
     Dates: start: 1995
  22. PROMEGESTONE [Suspect]
     Route: 048
     Dates: start: 1996
  23. PROMEGESTONE [Suspect]
     Route: 048
     Dates: start: 1997

REACTIONS (1)
  - Breast cancer [Not Recovered/Not Resolved]
